FAERS Safety Report 9592455 (Version 1)
Quarter: 2013Q3

REPORT INFORMATION
  Report Type: Spontaneous
  Country: DE (occurrence: None)
  Receive Date: 20130920
  Receipt Date: 20130920
  Transmission Date: 20140515
  Serious: Yes (Hospitalization)
  Sender: FDA-Public Use
  Company Number: 2013-00479

PATIENT
  Age: 34 Year
  Sex: Female

DRUGS (6)
  1. CIPROFLOXACIN [Suspect]
  2. CEFUROXIME [Suspect]
  3. AMPICILLIN [Suspect]
  4. AMPICILLIN/SULBACTAM [Suspect]
  5. CEFAZOLIN [Suspect]
  6. CLARITHROMYCIN [Suspect]

REACTIONS (2)
  - Organising pneumonia [None]
  - Drug resistance [None]
